FAERS Safety Report 9105136 (Version 1)
Quarter: 2013Q1

REPORT INFORMATION
  Report Type: Spontaneous
  Country: US (occurrence: US)
  Receive Date: 20130220
  Receipt Date: 20130220
  Transmission Date: 20140127
  Serious: Yes (Congenital Anomaly, Other)
  Sender: FDA-Public Use
  Company Number: US-PFIZER INC-2011275926

PATIENT
  Age: 2 Day
  Sex: Male

DRUGS (12)
  1. ZOLOFT [Suspect]
     Dosage: UNK
     Route: 064
     Dates: start: 1996, end: 2011
  2. ATIVAN [Concomitant]
     Dosage: UNK
     Route: 064
  3. LORTAB [Concomitant]
     Dosage: UNK
     Route: 064
  4. MACROBID [Concomitant]
     Dosage: UNK
     Route: 064
  5. PYRIDIUM [Concomitant]
     Dosage: UNK
     Route: 064
  6. PRENATAL VITAMINS [Concomitant]
     Dosage: UNK
     Route: 064
  7. PAXIL [Concomitant]
     Dosage: UNK
     Route: 064
  8. DOXYCYCLINE [Concomitant]
     Dosage: UNK
     Route: 064
  9. PHENERGAN [Concomitant]
     Dosage: UNK
     Route: 064
  10. VITAMIN E [Concomitant]
     Dosage: UNK
     Route: 064
  11. VITAMIN B6 [Concomitant]
     Dosage: UNK
     Route: 064
  12. PROZAC [Concomitant]
     Dosage: UNK
     Route: 064

REACTIONS (2)
  - Maternal exposure during pregnancy [Unknown]
  - Fallot^s tetralogy [Unknown]
